FAERS Safety Report 9435822 (Version 1)
Quarter: 2013Q3

REPORT INFORMATION
  Report Type: Spontaneous
  Country: US (occurrence: None)
  Receive Date: 20130801
  Receipt Date: 20130801
  Transmission Date: 20140515
  Serious: Yes (Other)
  Sender: FDA-Public Use
  Company Number: None

PATIENT
  Age: 63 None
  Sex: Female
  Weight: 90.72 kg

DRUGS (25)
  1. OMEPRAZOLE [Suspect]
     Indication: GASTRITIS
     Route: 048
     Dates: start: 201303, end: 20130705
  2. ASPIRIN [Concomitant]
  3. BUPROPION [Concomitant]
  4. CARBAMAZEPINE [Concomitant]
  5. GABAPENTIN [Concomitant]
  6. LORAZEPAM [Concomitant]
  7. RISPERIDONE [Concomitant]
  8. SERTRALINE [Concomitant]
  9. ZOLPIDEM [Concomitant]
  10. MULTI VITAMIN [Concomitant]
  11. B-COMPLEX [Concomitant]
  12. CALCIUM [Concomitant]
  13. VITAMIN C [Concomitant]
  14. MULTI VITAMIN OF MINERAL [Concomitant]
  15. B- COMPLEX [Concomitant]
  16. CALCIUM CHOLOR [Concomitant]
  17. VITAMIN C [Concomitant]
  18. ASPIRIN [Concomitant]
  19. ASPIRIN [Concomitant]
  20. BUPROPION [Concomitant]
  21. CARBAMAZEPINE [Concomitant]
  22. GABAPENTIN [Concomitant]
  23. LORAZEPAM [Concomitant]
  24. RISPERIDONE [Concomitant]
  25. ZOLPIDEM [Concomitant]

REACTIONS (7)
  - Gastritis [None]
  - Pruritus [None]
  - Decreased appetite [None]
  - Pain [None]
  - Abdominal distension [None]
  - Pain in extremity [None]
  - Back pain [None]
